FAERS Safety Report 10925533 (Version 1)
Quarter: 2015Q1

REPORT INFORMATION
  Report Type: Spontaneous
  Country: US (occurrence: None)
  Receive Date: 20150129
  Receipt Date: 20150129
  Transmission Date: 20150721
  Serious: Yes (Hospitalization)
  Sender: FDA-Public Use
  Company Number: 122997U

PATIENT
  Age: 51 Year
  Sex: Male
  Weight: 86.2 kg

DRUGS (15)
  1. LASIX [Concomitant]
     Active Substance: FUROSEMIDE
  2. TEGRETOL [Concomitant]
     Active Substance: CARBAMAZEPINE
  3. METFORMIN [Concomitant]
     Active Substance: METFORMIN HYDROCHLORIDE
  4. NITROSTATIN (GLYCERYL TRINITRATE) [Concomitant]
  5. NORVASC [Concomitant]
     Active Substance: AMLODIPINE BESYLATE
  6. COREG [Concomitant]
     Active Substance: CARVEDILOL
  7. NEURONTIN [Concomitant]
     Active Substance: GABAPENTIN
  8. ZOCOR [Concomitant]
     Active Substance: SIMVASTATIN
  9. BABY ASPIRIN (ACETYLSALICYLIC ACID) [Concomitant]
     Active Substance: ASPIRIN
  10. LEVEMIR [Concomitant]
     Active Substance: INSULIN DETEMIR
  11. LISINOPRIL (LISINOPRIL DIHYDRATE) [Concomitant]
  12. CLARITIN [Concomitant]
     Active Substance: LORATADINE
  13. CELEXA (CITALOPRAM HYDROBROIDE) [Concomitant]
  14. FERROUS SULFATE [Concomitant]
     Active Substance: FERROUS SULFATE\FERROUS SULFATE, DRIED
  15. KEPPRA [Suspect]
     Active Substance: LEVETIRACETAM
     Indication: EPILEPSY
     Route: 048
     Dates: end: 201405

REACTIONS (1)
  - Generalised tonic-clonic seizure [None]

NARRATIVE: CASE EVENT DATE: 201405
